FAERS Safety Report 7904831-2 (Version None)
Quarter: 2011Q4

REPORT INFORMATION
  Report Type: 
  Country: None (occurrence: None)
  Receive Date: 20111109
  Receipt Date: 20111026
  Transmission Date: 20120403
  Serious: Yes (Hospitalization)
  Sender: FDA-Public Use
  Company Number: PHEH2011US06828

PATIENT
  Sex: Male
  Weight: 75.873 kg

DRUGS (13)
  1. ALOXI [Suspect]
     Indication: ANTIEMETIC SUPPORTIVE CARE
     Dosage: 0.25 MG, UNK
     Route: 042
     Dates: start: 20100401
  2. FENTANYL-100 [Concomitant]
     Dosage: 25 MG, EVERY 72 HS
     Route: 061
  3. HEMODIALYSIS [Concomitant]
  4. ACYCLOVIR [Concomitant]
     Dosage: 400 MG, BID
     Dates: start: 20100504, end: 20100405
  5. OXYCONTIN [Concomitant]
  6. ZOMETA [Suspect]
     Indication: MULTIPLE MYELOMA
     Dosage: 4 MG/5ML
     Route: 042
     Dates: start: 20100401
  7. DOXI ^OM^ [Concomitant]
  8. REVLIMID [Concomitant]
  9. LACTULOSE [Concomitant]
     Indication: CONSTIPATION
     Dosage: 30 ML, QD (PRN)
     Route: 048
     Dates: start: 20100104
  10. DEXAMETHASONE [Suspect]
     Indication: MULTIPLE MYELOMA
     Dosage: 20 MG, DAY 1, 4, 8 AND 11
     Route: 042
     Dates: start: 20100401, end: 20100412
  11. PERCOCET [Concomitant]
  12. ZOMETA [Suspect]
     Dosage: 4 MG, EVERY 1 MONTH
  13. VELCADE [Suspect]
     Indication: MULTIPLE MYELOMA
     Dosage: 2.43 MG,DAY 1, 4, 8, 11
     Route: 042
     Dates: start: 20100401, end: 20100412

REACTIONS (6)
  - TUMOUR LYSIS SYNDROME [None]
  - BLOOD POTASSIUM INCREASED [None]
  - BLOOD URIC ACID INCREASED [None]
  - BLOOD PHOSPHORUS INCREASED [None]
  - BLOOD CALCIUM DECREASED [None]
  - BLOOD CREATININE INCREASED [None]
